FAERS Safety Report 17542088 (Version 1)
Quarter: 2020Q1

REPORT INFORMATION
  Report Type: Spontaneous
  Country: GB (occurrence: GB)
  Receive Date: 20200313
  Receipt Date: 20200313
  Transmission Date: 20200409
  Serious: Yes (Other)
  Sender: FDA-Public Use
  Company Number: GB-DEXPHARM-20200204

PATIENT
  Age: 72 Year
  Sex: Female
  Weight: 78 kg

DRUGS (9)
  1. HYLO-FORTE [Concomitant]
     Active Substance: HYALURONATE SODIUM
  2. LOSARTAN. [Concomitant]
     Active Substance: LOSARTAN
  3. RABEPRAZOLE SODIUM. [Concomitant]
     Active Substance: RABEPRAZOLE SODIUM
  4. AMLODIPINE [Concomitant]
     Active Substance: AMLODIPINE BESYLATE
  5. BENDROFLUMETHIAZIDE [Concomitant]
     Active Substance: BENDROFLUMETHIAZIDE
  6. LINSEED [Concomitant]
     Active Substance: HERBALS\LINSEED OIL
     Indication: DRY EYE
     Dosage: ALLERGIC TO STATINS
  7. EZETIMIBE. [Concomitant]
     Active Substance: EZETIMIBE
     Dosage: ALLERGIC TO STATINS
  8. ISOSORBIDE MONONITRATE. [Suspect]
     Active Substance: ISOSORBIDE MONONITRATE
     Indication: ANGINA UNSTABLE
     Dosage: ALLERGIC TO STATINS
     Route: 048
     Dates: start: 20200207, end: 20200215
  9. ACETYLSALICYLIC ACID [Concomitant]
     Active Substance: ASPIRIN

REACTIONS (3)
  - Nausea [Recovered/Resolved with Sequelae]
  - Headache [Recovered/Resolved with Sequelae]
  - Chest pain [Recovered/Resolved with Sequelae]

NARRATIVE: CASE EVENT DATE: 20200207
